FAERS Safety Report 8739440 (Version 2)
Quarter: 2012Q4

REPORT INFORMATION
  Report Type: 
  Country: US (occurrence: None)
  Receive Date: 20120807
  Receipt Date: 20120814
  Transmission Date: 20130627
  Serious: Yes (Hospitalization, Other)
  Sender: FDA-Public Use
  Company Number: 2012AP002297

PATIENT
  Age: 31 Year
  Sex: Male

DRUGS (4)
  1. TRAMADOL HYDROCHLORIDE [Suspect]
     Indication: SUICIDE ATTEMPT
     Dosage: 50 MG;PO ; 84 TAB;1X;PO
     Route: 048
  2. TRAMADOL HYDROCHLORIDE [Suspect]
     Indication: PRODUCT USED FOR UNKNOWN INDICATION
     Dosage: 50 MG;PO ; 84 TAB;1X;PO
     Route: 048
  3. RISPERIDONE [Suspect]
     Indication: PRODUCT USED FOR UNKNOWN INDICATION
  4. DULOXETINE HYDROCHLORIDE [Suspect]
     Indication: PRODUCT USED FOR UNKNOWN INDICATION
     Dosage: 60 MG;QD

REACTIONS (9)
  - TACHYCARDIA [None]
  - SUICIDE ATTEMPT [None]
  - INTENTIONAL OVERDOSE [None]
  - BLOOD PRESSURE INCREASED [None]
  - TONIC CONVULSION [None]
  - POSTICTAL STATE [None]
  - CONFUSIONAL STATE [None]
  - DRUG SCREEN FALSE POSITIVE [None]
  - TOXICITY TO VARIOUS AGENTS [None]
